FAERS Safety Report 5479577-3 (Version None)
Quarter: 2007Q4

REPORT INFORMATION
  Report Type: 
  Country: None (occurrence: None)
  Receive Date: 20071008
  Receipt Date: 20070926
  Transmission Date: 20080405
  Serious: Yes (Hospitalization, Other)
  Sender: FDA-Public Use
  Company Number: JP-PURDUE-MAG_2007_0000589

PATIENT
  Age: 75 Year
  Sex: Female

DRUGS (17)
  1. OXYCODONE HCL [Suspect]
     Indication: CANCER PAIN
     Dosage: 10 MG, BID
     Route: 048
     Dates: start: 20050603, end: 20050616
  2. OXYCODONE HCL [Suspect]
     Dosage: 20 MG, BID
     Route: 048
     Dates: start: 20050617, end: 20050630
  3. OXYCODONE HCL [Suspect]
     Dosage: 30 MG, BID
     Route: 048
     Dates: start: 20050701, end: 20050714
  4. OXYCODONE HCL [Suspect]
     Dosage: 40 MG, BID
     Route: 048
     Dates: start: 20050715, end: 20050815
  5. OXYCODONE HCL [Suspect]
     Dosage: 30 MG, BID
     Route: 048
     Dates: start: 20050816, end: 20060413
  6. OXYCODONE HCL [Suspect]
     Dosage: 40 MG, BID
     Route: 048
     Dates: start: 20060414, end: 20060625
  7. OXYCODONE HCL [Suspect]
     Dosage: 50 MG, BID
     Route: 048
     Dates: start: 20060626, end: 20060706
  8. OXYCODONE HCL [Suspect]
     Dosage: 60 MG, BID
     Route: 048
     Dates: start: 20060707, end: 20060713
  9. OXYCODONE HCL [Suspect]
     Dosage: 70 MG, BID
     Route: 048
     Dates: start: 20060714, end: 20060722
  10. SENNA LEAF [Concomitant]
     Indication: CONSTIPATION
     Route: 065
  11. GLYCERIN ENEMA [Concomitant]
     Indication: CONSTIPATION
     Dosage: 120 ML, DAILY
     Route: 065
     Dates: start: 20050816
  12. PAXIL [Concomitant]
     Indication: DEPRESSION
     Dosage: 10 MG, DAILY
     Route: 048
     Dates: start: 20050916, end: 20060722
  13. CALONAL [Concomitant]
     Indication: HEADACHE
     Dosage: 600 MG, DAILY
     Route: 048
  14. MEDICON [Concomitant]
     Indication: COUGH
     Dosage: 100 MG, DAILY
     Route: 048
     Dates: start: 20050603, end: 20050701
  15. ESTAZOLAM [Concomitant]
     Indication: INSOMNIA
     Dosage: 2 MG, DAILY
     Route: 048
     Dates: start: 20050603
  16. ALOSENN [Concomitant]
     Indication: CONSTIPATION PROPHYLAXIS
     Dosage: 1 GRAM, DAILY
     Route: 048
     Dates: start: 20050603, end: 20050714
  17. LAXOBERON [Concomitant]
     Indication: CONSTIPATION
     Dosage: 20 DROP, DAILY
     Route: 048
     Dates: start: 20050701

REACTIONS (4)
  - CONSTIPATION [None]
  - HYPERKALAEMIA [None]
  - MALAISE [None]
  - MELAENA [None]
